FAERS Safety Report 22079959 (Version 1)
Quarter: 2023Q1

REPORT INFORMATION
  Report Type: Spontaneous
  Country: US (occurrence: None)
  Receive Date: 20230308
  Receipt Date: 20230308
  Transmission Date: 20230418
  Serious: Yes (Hospitalization)
  Sender: FDA-Public Use
  Company Number: None

PATIENT
  Sex: Female

DRUGS (5)
  1. STELARA [Suspect]
     Active Substance: USTEKINUMAB
     Indication: Immunology test abnormal
     Dosage: OTHER FREQUENCY : EVERY 3 MONTHS;?
     Route: 058
     Dates: start: 20200411
  2. ATORVASTATIN [Concomitant]
     Active Substance: ATORVASTATIN
  3. CLONIDINE TAB [Concomitant]
  4. LOSARTAN POT TAB [Concomitant]
  5. VITAMIN D2 TAB [Concomitant]

REACTIONS (3)
  - Unevaluable event [None]
  - Insurance issue [None]
  - Therapy interrupted [None]
